FAERS Safety Report 16682625 (Version 1)
Quarter: 2019Q3

REPORT INFORMATION
  Report Type: Spontaneous
  Country: US (occurrence: US)
  Receive Date: 20190808
  Receipt Date: 20190808
  Transmission Date: 20191004
  Serious: No
  Sender: FDA-Public Use
  Company Number: US-PFIZER INC-2019335457

PATIENT
  Age: 69 Year
  Sex: Female
  Weight: 92.8 kg

DRUGS (1)
  1. AROMASIN [Suspect]
     Active Substance: EXEMESTANE
     Indication: ENDOMETRIAL CANCER METASTATIC
     Dosage: 25 MG, 1X/DAY [1 TABLET BY MOUTH DAILY AFTER A MEAL]
     Dates: end: 20190529

REACTIONS (4)
  - Product use in unapproved indication [Unknown]
  - Discomfort [Unknown]
  - Neoplasm progression [Unknown]
  - Off label use [Unknown]

NARRATIVE: CASE EVENT DATE: 20190529
